FAERS Safety Report 9646390 (Version 1)
Quarter: 2013Q4

REPORT INFORMATION
  Report Type: Report from Study
  Country: US (occurrence: US)
  Receive Date: 20131025
  Receipt Date: 20131025
  Transmission Date: 20140711
  Serious: Yes (Hospitalization, Other)
  Sender: FDA-Public Use
  Company Number: US-ABBVIE-13P-163-1160579-00

PATIENT
  Sex: Male

DRUGS (2)
  1. LUPRON DEPOT [Suspect]
     Indication: MATERNAL EXPOSURE TIMING UNSPECIFIED
     Route: 064
  2. LUPRON DEPOT [Suspect]
     Route: 063

REACTIONS (7)
  - Premature baby [Recovered/Resolved]
  - Foetal exposure during pregnancy [Unknown]
  - Heart rate decreased [Recovered/Resolved]
  - Umbilical cord around neck [Recovered/Resolved]
  - Jaundice neonatal [Recovered/Resolved]
  - Poor sucking reflex [Recovered/Resolved]
  - Exposure during breast feeding [Unknown]
